FAERS Safety Report 9834467 (Version 2)
Quarter: 2014Q1

REPORT INFORMATION
  Report Type: Spontaneous
  Country: MX (occurrence: MX)
  Receive Date: 20140122
  Receipt Date: 20140129
  Transmission Date: 20141002
  Serious: Yes (Death, Other)
  Sender: FDA-Public Use
  Company Number: MX-SA-2014SA008420

PATIENT
  Age: 14 Month
  Sex: Female

DRUGS (6)
  1. CEREZYME [Suspect]
     Indication: GAUCHER^S DISEASE
     Route: 042
     Dates: start: 20131204, end: 20131219
  2. FOLIC ACID [Concomitant]
  3. FERROUS SULFATE [Concomitant]
  4. ASCORBIC ACID/ERGOCALCIFEROL/RETINOL [Concomitant]
  5. ZINC SULFATE [Concomitant]
  6. VIGABATRIN [Concomitant]

REACTIONS (10)
  - Aspiration [Fatal]
  - Syncope [Fatal]
  - Cardio-respiratory arrest [Fatal]
  - Apnoea [Fatal]
  - Thrombocytopenia [Unknown]
  - Bradycardia [Unknown]
  - Gingival bleeding [Unknown]
  - Epistaxis [Unknown]
  - Influenza [Unknown]
  - Mucosal erosion [Unknown]
